FAERS Safety Report 25328812 (Version 3)
Quarter: 2025Q2

REPORT INFORMATION
  Report Type: Spontaneous
  Country: SK (occurrence: SK)
  Receive Date: 20250519
  Receipt Date: 20250612
  Transmission Date: 20250717
  Serious: Yes (Hospitalization, Other)
  Sender: TEVA
  Company Number: SK-SANDOZ-SDZ2025SK022401

PATIENT
  Age: 59 Year
  Sex: Male

DRUGS (7)
  1. RIVAROXABAN [Suspect]
     Active Substance: RIVAROXABAN
     Indication: Product used for unknown indication
     Route: 065
  2. APIXABAN [Suspect]
     Active Substance: APIXABAN
     Indication: Product used for unknown indication
     Route: 065
  3. HYDROXYUREA [Concomitant]
     Active Substance: HYDROXYUREA
     Indication: Product used for unknown indication
     Route: 065
  4. CLOPIDOGREL [Suspect]
     Active Substance: CLOPIDOGREL BISULFATE
     Indication: Product used for unknown indication
     Dosage: CLOPIDOGREL SULFATE
     Route: 065
  5. INTRON A [Concomitant]
     Active Substance: INTERFERON ALFA-2B
     Indication: Product used for unknown indication
     Route: 065
     Dates: start: 202002
  6. INTRON A [Concomitant]
     Active Substance: INTERFERON ALFA-2B
     Indication: Product used for unknown indication
     Route: 065
     Dates: start: 201901
  7. INTRON A [Concomitant]
     Active Substance: INTERFERON ALFA-2B
     Indication: Product used for unknown indication
     Route: 065
     Dates: start: 201702

REACTIONS (14)
  - Pulmonary embolism [Unknown]
  - Varicophlebitis [Unknown]
  - Haemoptysis [Unknown]
  - Sticky platelet syndrome [Unknown]
  - Thrombosis [Unknown]
  - Thrombophlebitis [Unknown]
  - Vena cava thrombosis [Unknown]
  - Hyperbilirubinaemia [Unknown]
  - Hepatosplenomegaly [Unknown]
  - Portal hypertension [Unknown]
  - Rectal neoplasm [Unknown]
  - Portal vein thrombosis [Unknown]
  - Pelvic venous thrombosis [Unknown]
  - Pancreatic disorder [Unknown]

NARRATIVE: CASE EVENT DATE: 20100901
